FAERS Safety Report 7991248-8 (Version None)
Quarter: 2011Q4

REPORT INFORMATION
  Report Type: 
  Country: None (occurrence: None)
  Receive Date: 20111219
  Receipt Date: 20111208
  Transmission Date: 20120403
  Serious: Yes (Disabling)
  Sender: FDA-Public Use
  Company Number: GB-GLAXOSMITHKLINE-B0767731A

PATIENT
  Age: 64 Year
  Sex: Male
  Weight: 82 kg

DRUGS (13)
  1. GLUCOSAMINE SULPHATE [Concomitant]
     Dates: start: 20110801
  2. PREDNISOLONE [Concomitant]
     Dates: start: 20110922
  3. FLUTICASONE PROPIONATE [Concomitant]
     Dates: start: 20110802
  4. DOXYCYCLINE [Concomitant]
     Dates: start: 20110922
  5. SEREVENT [Suspect]
     Route: 055
     Dates: start: 20111128
  6. HYPROMELLOSE [Concomitant]
     Dates: start: 20110801
  7. VISCOTEARS [Concomitant]
     Dates: start: 20110801, end: 20110829
  8. ACETAMINOPHEN AND CODEINE PHOSPHATE [Concomitant]
     Dates: start: 20110908
  9. FUROSEMIDE [Concomitant]
     Dates: start: 20111013
  10. VENTOLIN [Concomitant]
     Dates: start: 20110802
  11. SIMVASTATIN [Concomitant]
     Dates: start: 20111013
  12. HYDROCORTISONE [Concomitant]
     Dates: start: 20110922
  13. ASPIRIN [Concomitant]
     Dates: start: 20111101

REACTIONS (1)
  - BRONCHOSPASM [None]
